FAERS Safety Report 16559090 (Version 1)
Quarter: 2019Q3

REPORT INFORMATION
  Report Type: Spontaneous
  Country: GB (occurrence: GB)
  Receive Date: 20190711
  Receipt Date: 20190711
  Transmission Date: 20191004
  Serious: Yes (Other)
  Sender: FDA-Public Use
  Company Number: GB-TEVA-2019-GB-1075504

PATIENT
  Age: 72 Year
  Sex: Male
  Weight: 134 kg

DRUGS (5)
  1. SUMATRIPTAN. [Concomitant]
     Active Substance: SUMATRIPTAN
     Dosage: AS DIRECTED
     Dates: start: 20180119
  2. NAPROXEN. [Suspect]
     Active Substance: NAPROXEN
     Dosage: TAKE ONE TO TWO TWICE DAILY
     Dates: start: 20190604
  3. SIMVASTATIN. [Concomitant]
     Active Substance: SIMVASTATIN
     Dosage: NIGHT
     Dates: start: 20180119
  4. ZAPAIN [Concomitant]
     Active Substance: ACETAMINOPHEN\CODEINE PHOSPHATE
     Dosage: TAKE 1 OR 2, 4 TIMES/DAY
     Dates: start: 20180119
  5. LEVOTHYROXINE. [Concomitant]
     Active Substance: LEVOTHYROXINE
     Dates: start: 20180119

REACTIONS (2)
  - Oedema peripheral [Unknown]
  - Peripheral swelling [Unknown]
